FAERS Safety Report 4349226-6 (Version None)
Quarter: 2004Q2

REPORT INFORMATION
  Report Type: 
  Country: None (occurrence: None)
  Receive Date: 20040428
  Receipt Date: 20000621
  Transmission Date: 20050107
  Serious: Yes (Disabling)
  Sender: FDA-Public Use
  Company Number: AU-MERCK-00063572

PATIENT
  Age: 55 Year
  Sex: Female
  Weight: 65 kg

DRUGS (1)
  1. FOSAMAX [Suspect]
     Indication: OSTEOPOROSIS
     Route: 048
     Dates: start: 19980814, end: 20000628

REACTIONS (7)
  - ANGLE CLOSURE GLAUCOMA [None]
  - HEADACHE [None]
  - PHOTOPHOBIA [None]
  - RETINAL PALLOR [None]
  - UVEITIS [None]
  - VISUAL DISTURBANCE [None]
  - VITREOUS FLOATERS [None]
